FAERS Safety Report 7596244-0 (Version None)
Quarter: 2011Q3

REPORT INFORMATION
  Report Type: 
  Country: None (occurrence: None)
  Receive Date: 20110707
  Receipt Date: 20110705
  Transmission Date: 20111222
  Serious: Yes (Hospitalization)
  Sender: FDA-Public Use
  Company Number: FR-PFIZER INC-2011149488

PATIENT
  Age: 20 Year
  Sex: Male

DRUGS (1)
  1. SOLU-MEDROL [Suspect]
     Dosage: UNK
     Route: 042
     Dates: start: 20110529, end: 20110529

REACTIONS (2)
  - BRONCHOSPASM [None]
  - COUGH [None]
